FAERS Safety Report 20003102 (Version 2)
Quarter: 2021Q4

REPORT INFORMATION
  Report Type: Report from Study
  Country: US (occurrence: US)
  Receive Date: 20211027
  Receipt Date: 20211119
  Transmission Date: 20220303
  Serious: Yes (Death, Other)
  Sender: FDA-Public Use
  Company Number: US-SEATTLE GENETICS-2021SGN04928

PATIENT
  Age: 57 Year
  Sex: Female

DRUGS (1)
  1. TUCATINIB [Suspect]
     Active Substance: TUCATINIB
     Indication: Breast cancer female
     Dosage: 150 MG

REACTIONS (3)
  - Disease progression [Fatal]
  - Pneumonia [Unknown]
  - Hospice care [Unknown]

NARRATIVE: CASE EVENT DATE: 20210921
